FAERS Safety Report 5294055-2 (Version None)
Quarter: 2007Q2

REPORT INFORMATION
  Report Type: 
  Country: None (occurrence: None)
  Receive Date: 20070406
  Receipt Date: 20070328
  Transmission Date: 20071010
  Serious: Yes (Hospitalization)
  Sender: FDA-Public Use
  Company Number: 163-21880-07040076

PATIENT
  Age: 72 Year
  Sex: Male

DRUGS (3)
  1. REVLIMID [Suspect]
     Indication: PROSTATE CANCER
     Dosage: 25 MG, 21 DAYS, OFF 7 DAYS, ORAL
     Route: 048
     Dates: start: 20060421
  2. GM-CSF (GRANULOCYTE MACROPHAGE COLONY STIM FACTOR) [Suspect]
     Indication: PROSTATE CANCER
     Dosage: 250 MG, EVERY M, W, F, SUBCUTANEOUS
     Route: 058
     Dates: start: 20060421
  3. COUMADIN [Concomitant]

REACTIONS (1)
  - AMNESIA [None]
